FAERS Safety Report 17048003 (Version 2)
Quarter: 2019Q4

REPORT INFORMATION
  Report Type: Spontaneous
  Country: US (occurrence: US)
  Receive Date: 20191119
  Receipt Date: 20191122
  Transmission Date: 20200122
  Serious: Yes (Other)
  Sender: FDA-Public Use
  Company Number: US-ASTRAZENECA-2019SF63535

PATIENT
  Sex: Female
  Weight: 71.7 kg

DRUGS (3)
  1. LANTUS [Concomitant]
     Active Substance: INSULIN GLARGINE
  2. BYDUREON BCISE [Suspect]
     Active Substance: EXENATIDE
     Indication: RENAL DISORDER
     Route: 058
     Dates: start: 20191107
  3. BYDUREON [Suspect]
     Active Substance: EXENATIDE
     Indication: RENAL DISORDER
     Route: 058
     Dates: end: 20191031

REACTIONS (3)
  - Neoplasm malignant [Not Recovered/Not Resolved]
  - Incorrect dose administered by device [Unknown]
  - Device issue [Unknown]
